FAERS Safety Report 7735765-4 (Version None)
Quarter: 2011Q3

REPORT INFORMATION
  Report Type: 
  Country: None (occurrence: None)
  Receive Date: 20110908
  Receipt Date: 20110830
  Transmission Date: 20111222
  Serious: Yes (Hospitalization)
  Sender: FDA-Public Use
  Company Number: US-BIOGENIDEC-2011BI033336

PATIENT
  Age: 46 Year
  Sex: Male

DRUGS (1)
  1. AVONEX [Suspect]
     Indication: MULTIPLE SCLEROSIS
     Route: 030
     Dates: start: 20100901

REACTIONS (5)
  - BLOOD MAGNESIUM DECREASED [None]
  - CARDIAC FLUTTER [None]
  - MULTIPLE SCLEROSIS RELAPSE [None]
  - HEART RATE DECREASED [None]
  - BLOOD POTASSIUM DECREASED [None]
